FAERS Safety Report 12494776 (Version 1)
Quarter: 2016Q2

REPORT INFORMATION
  Report Type: Spontaneous
  Country: US (occurrence: US)
  Receive Date: 20160624
  Receipt Date: 20160624
  Transmission Date: 20160815
  Serious: No
  Sender: FDA-Public Use
  Company Number: US-ASTRAZENECA-2016SE54619

PATIENT
  Age: 80 Year
  Sex: Female

DRUGS (12)
  1. LYNPARZA [Suspect]
     Active Substance: OLAPARIB
     Indication: OVARIAN CANCER
     Route: 048
     Dates: start: 2016
  2. AVASTIN [Concomitant]
     Active Substance: BEVACIZUMAB
     Route: 065
  3. FOLIC ACID. [Concomitant]
     Active Substance: FOLIC ACID
     Route: 065
  4. LOSARTAN. [Concomitant]
     Active Substance: LOSARTAN
     Indication: BLOOD PRESSURE ABNORMAL
     Route: 065
  5. VITAMIN B12 [Concomitant]
     Active Substance: CYANOCOBALAMIN
     Route: 065
  6. TAXOL [Concomitant]
     Active Substance: PACLITAXEL
     Route: 065
  7. CHEMOTHERAPY MULTIPLE [Concomitant]
  8. CARBOPLATIN. [Concomitant]
     Active Substance: CARBOPLATIN
     Route: 065
  9. LABETALOL [Concomitant]
     Active Substance: LABETALOL\LABETALOL HYDROCHLORIDE
     Route: 065
  10. CLONIDINE. [Concomitant]
     Active Substance: CLONIDINE
     Indication: SLEEP DISORDER
     Dosage: 0.1MG AS REQUIRED
     Route: 065
  11. CLONIDINE. [Concomitant]
     Active Substance: CLONIDINE
     Indication: BLOOD PRESSURE SYSTOLIC INCREASED
     Dosage: 0.1MG AS REQUIRED
     Route: 065
  12. DOXIL [Concomitant]
     Active Substance: DOXORUBICIN HYDROCHLORIDE
     Route: 065

REACTIONS (3)
  - Blood pressure abnormal [Unknown]
  - Fatigue [Unknown]
  - Cough [Unknown]
